FAERS Safety Report 8017959-6 (Version None)
Quarter: 2012Q1

REPORT INFORMATION
  Report Type: 
  Country: None (occurrence: None)
  Receive Date: 20120103
  Receipt Date: 20111221
  Transmission Date: 20120608
  Serious: Yes (Hospitalization)
  Sender: FDA-Public Use
  Company Number: CH-JNJFOC-20110901233

PATIENT
  Sex: Male
  Weight: 92 kg

DRUGS (10)
  1. FENTANYL [Concomitant]
     Indication: TUMOUR PAIN
     Route: 048
     Dates: start: 20110819
  2. ABIRATERONE ACETATE [Suspect]
     Indication: PROSTATE CANCER METASTATIC
     Route: 048
     Dates: start: 20110708, end: 20110903
  3. NOVALGIN [Concomitant]
     Indication: TUMOUR PAIN
     Route: 048
     Dates: start: 20110413
  4. ABIRATERONE ACETATE [Suspect]
     Route: 048
  5. PREDNISONE TAB [Suspect]
     Indication: PROSTATE CANCER METASTATIC
     Route: 048
     Dates: start: 20110415
  6. ABSTRAL [Concomitant]
     Indication: TUMOUR PAIN
     Route: 048
     Dates: end: 20110901
  7. GLICLAZID [Concomitant]
     Indication: DIABETES MELLITUS
     Route: 048
  8. LODINE [Concomitant]
     Indication: TUMOUR PAIN
     Route: 048
     Dates: start: 20110121
  9. PERINDOPRIL ERBUMINE [Concomitant]
     Indication: HYPOTENSION
     Route: 048
     Dates: start: 20110121
  10. TORSEMIDE [Concomitant]
     Indication: HYPOTENSION
     Route: 048
     Dates: start: 20110415, end: 20110901

REACTIONS (2)
  - MUSCULAR WEAKNESS [None]
  - TUMOUR PAIN [None]
